FAERS Safety Report 11317050 (Version 3)
Quarter: 2015Q3

REPORT INFORMATION
  Report Type: Spontaneous
  Country: US (occurrence: US)
  Receive Date: 20150728
  Receipt Date: 20150821
  Transmission Date: 20151125
  Serious: Yes (Other)
  Sender: FDA-Public Use
  Company Number: US-PFIZER INC-2015247633

PATIENT
  Age: 57 Year
  Sex: Male
  Weight: 106 kg

DRUGS (1)
  1. XANAX [Suspect]
     Active Substance: ALPRAZOLAM
     Dosage: UNK

REACTIONS (6)
  - Coronary artery occlusion [Unknown]
  - Depressed mood [Unknown]
  - Myocardial infarction [Unknown]
  - Dyspnoea [Unknown]
  - Anxiety [Unknown]
  - Pyrexia [Unknown]
